FAERS Safety Report 18718406 (Version 2)
Quarter: 2021Q1

REPORT INFORMATION
  Report Type: Report from Study
  Country: US (occurrence: US)
  Receive Date: 20210108
  Receipt Date: 20210113
  Transmission Date: 20210419
  Serious: Yes (Other)
  Sender: FDA-Public Use
  Company Number: NVSC2020US347704

PATIENT
  Sex: Female

DRUGS (1)
  1. ENTRESTO [Suspect]
     Active Substance: SACUBITRIL\VALSARTAN
     Indication: CARDIAC FAILURE
     Dosage: 1 DF, BID (24/26 MG)
     Route: 048
     Dates: start: 202010

REACTIONS (5)
  - Alopecia [Unknown]
  - Loss of consciousness [Unknown]
  - Rash [Unknown]
  - Breast cancer [Unknown]
  - Dizziness [Unknown]

NARRATIVE: CASE EVENT DATE: 2020
